FAERS Safety Report 9371669 (Version 1)
Quarter: 2013Q2

REPORT INFORMATION
  Report Type: Spontaneous
  Country: US (occurrence: US)
  Receive Date: 20130627
  Receipt Date: 20130627
  Transmission Date: 20140414
  Serious: No
  Sender: FDA-Public Use
  Company Number: US-PFIZER INC-2013189118

PATIENT
  Age: 25 Year
  Sex: Female
  Weight: 209 kg

DRUGS (3)
  1. ZOLOFT [Suspect]
     Indication: ANXIETY
     Dosage: 100 MG, 2X/DAY
     Route: 048
     Dates: start: 2011
  2. ZOLOFT [Suspect]
     Indication: PANIC ATTACK
     Dosage: 50 MG, 2X/DAY
     Route: 048
  3. SYNTHROID [Concomitant]
     Indication: THYROID DISORDER
     Dosage: UNK

REACTIONS (2)
  - Obesity [Unknown]
  - Paraesthesia [Unknown]
